FAERS Safety Report 9579924 (Version 1)
Quarter: 2013Q3

REPORT INFORMATION
  Report Type: Spontaneous
  Country: US (occurrence: None)
  Receive Date: 20130916
  Receipt Date: 20130916
  Transmission Date: 20140515
  Serious: Yes (Other)
  Sender: FDA-Public Use
  Company Number: JPI-P-025618

PATIENT
  Age: 43 Year
  Sex: Female
  Weight: 80.74 kg

DRUGS (6)
  1. XYREM [Suspect]
     Indication: NARCOLEPSY
     Route: 048
     Dates: start: 20120914, end: 2012
  2. XYREM [Suspect]
     Indication: SOMNOLENCE
     Route: 048
     Dates: start: 20120914, end: 2012
  3. VITAMINS [Concomitant]
  4. BUTTERBER VITAMIN [Concomitant]
  5. NORTRIPTYLINE [Concomitant]
  6. PROPRANOLOL [Concomitant]

REACTIONS (8)
  - Weight decreased [None]
  - Breast tenderness [None]
  - Hypersensitivity [None]
  - Eye swelling [None]
  - Ocular hyperaemia [None]
  - Nervousness [None]
  - Feeling jittery [None]
  - Decreased appetite [None]
